FAERS Safety Report 4358046-8 (Version None)
Quarter: 2004Q2

REPORT INFORMATION
  Report Type: 
  Country: None (occurrence: None)
  Receive Date: 20040514
  Receipt Date: 20040510
  Transmission Date: 20050107
  Serious: Yes (Hospitalization)
  Sender: FDA-Public Use
  Company Number: 200411046DE

PATIENT
  Sex: Male

DRUGS (1)
  1. RIFINAH [Suspect]
     Indication: TUBERCULOSIS
     Route: 048

REACTIONS (1)
  - DYSPNOEA [None]
